FAERS Safety Report 4712264-5 (Version None)
Quarter: 2005Q3

REPORT INFORMATION
  Report Type: 
  Country: None (occurrence: None)
  Receive Date: 20050712
  Receipt Date: 20050630
  Transmission Date: 20060218
  Serious: Yes (Hospitalization)
  Sender: FDA-Public Use
  Company Number: US-GLAXOSMITHKLINE-B0386999A

PATIENT
  Age: 73 Year
  Sex: Male

DRUGS (11)
  1. SERETIDE [Suspect]
     Indication: ILL-DEFINED DISORDER
     Route: 055
     Dates: end: 20050508
  2. VASTEN [Suspect]
     Dosage: 20MG PER DAY
     Route: 048
     Dates: end: 20050508
  3. PLAVIX [Suspect]
     Dosage: 75MG PER DAY
     Route: 048
     Dates: end: 20050508
  4. CORVASAL [Suspect]
     Route: 048
     Dates: end: 20050508
  5. CORBIONAX [Suspect]
     Dosage: 200MG SEE DOSAGE TEXT
     Route: 048
     Dates: end: 20050508
  6. AMLODIPINE BESYLATE [Suspect]
     Dosage: 5MG PER DAY
     Route: 048
     Dates: end: 20050508
  7. IMMUCYST [Suspect]
     Dosage: 81MG WEEKLY
     Dates: start: 20050307, end: 20050418
  8. OGAST [Suspect]
     Dosage: 15MG PER DAY
     Route: 048
     Dates: end: 20050508
  9. COMBIVENT [Suspect]
     Route: 055
     Dates: end: 20050508
  10. ZOLPIDEM [Suspect]
     Route: 048
     Dates: end: 20050508
  11. ALPRAZOLAM [Suspect]
     Dates: end: 20050508

REACTIONS (11)
  - BLADDER NEOPLASM [None]
  - DYSPNOEA [None]
  - GAMMA-GLUTAMYLTRANSFERASE INCREASED [None]
  - HYDRONEPHROSIS [None]
  - HYPOALBUMINAEMIA [None]
  - HYPOXIA [None]
  - INTERSTITIAL LUNG DISEASE [None]
  - LEUKOCYTOSIS [None]
  - LUNG DISORDER [None]
  - PYREXIA [None]
  - URETERIC STENOSIS [None]
